FAERS Safety Report 10495718 (Version 1)
Quarter: 2014Q4

REPORT INFORMATION
  Report Type: Report from Study
  Country: ES (occurrence: ES)
  Receive Date: 20141003
  Receipt Date: 20141003
  Transmission Date: 20150528
  Serious: Yes (Other)
  Sender: FDA-Public Use
  Company Number: ES-MYLANLABS-2014M1006115

PATIENT

DRUGS (5)
  1. CYTARABINE. [Suspect]
     Active Substance: CYTARABINE
     Indication: ACUTE MYELOID LEUKAEMIA
     Dosage: HIGH-DOSE
     Route: 065
     Dates: start: 200903
  2. FLUCONAZOLE. [Concomitant]
     Active Substance: FLUCONAZOLE
     Indication: ANTIFUNGAL PROPHYLAXIS
     Dosage: 200 MG, QD
     Route: 065
  3. VORICONAZOLE. [Suspect]
     Active Substance: VORICONAZOLE
     Indication: OFF LABEL USE
  4. VORICONAZOLE. [Suspect]
     Active Substance: VORICONAZOLE
     Indication: SYSTEMIC MYCOSIS
     Route: 065
  5. AMSACRINE [Suspect]
     Active Substance: AMSACRINE
     Indication: ACUTE MYELOID LEUKAEMIA
     Dosage: HIGH-DOSE
     Route: 065
     Dates: start: 200903

REACTIONS (6)
  - Neutropenia [Recovered/Resolved]
  - Colitis [Recovered/Resolved]
  - Systemic mycosis [Recovered/Resolved]
  - Staphylococcal infection [Recovered/Resolved]
  - Candida infection [Recovered/Resolved]
  - Neurotoxicity [Recovered/Resolved]
